FAERS Safety Report 19457531 (Version 1)
Quarter: 2021Q2

REPORT INFORMATION
  Report Type: Report from Study
  Country: US (occurrence: US)
  Receive Date: 20210624
  Receipt Date: 20210624
  Transmission Date: 20210717
  Serious: Yes (Other)
  Sender: FDA-Public Use
  Company Number: US-TAKEDA-US202021034

PATIENT
  Age: 60 Year
  Sex: Female

DRUGS (1)
  1. CUVITRU [Suspect]
     Active Substance: HUMAN IMMUNOGLOBULIN G
     Indication: PRIMARY IMMUNODEFICIENCY SYNDROME
     Route: 065

REACTIONS (8)
  - Scar [Unknown]
  - Taste disorder [Not Recovered/Not Resolved]
  - Gastrointestinal disorder [Unknown]
  - Parosmia [Not Recovered/Not Resolved]
  - Vocal cord operation [Unknown]
  - Pain [Unknown]
  - Temporomandibular joint syndrome [Unknown]
  - COVID-19 [Unknown]

NARRATIVE: CASE EVENT DATE: 202105
